FAERS Safety Report 9219121 (Version 2)
Quarter: 2013Q3

REPORT INFORMATION
  Report Type: Spontaneous
  Country: US (occurrence: US)
  Receive Date: 20130409
  Receipt Date: 20130809
  Transmission Date: 20140515
  Serious: Yes (Life-Threatening, Hospitalization)
  Sender: FDA-Public Use
  Company Number: US-BAYER-2013-042577

PATIENT
  Age: 41 Year
  Sex: Female
  Weight: 70.3 kg

DRUGS (8)
  1. YASMIN [Suspect]
     Dosage: UNK
     Dates: start: 20060422, end: 20060715
  2. METHYLPREDNISOLON [Concomitant]
     Dosage: 4 MG, UNK
     Dates: start: 20060623
  3. PREDNISONE [Concomitant]
     Dosage: 15 MG, UNK
  4. PREDNISONE [Concomitant]
     Dosage: 5 MG, UNK
  5. NEXIUM [Concomitant]
     Dosage: 40 MG, UNK
  6. SINGULAIR [Concomitant]
  7. ADVAIR [Concomitant]
  8. FERROUS SULFATE [Concomitant]

REACTIONS (7)
  - Pulmonary embolism [None]
  - Deep vein thrombosis [None]
  - Injury [None]
  - Pain [None]
  - Anxiety [None]
  - Anhedonia [None]
  - Fear of disease [None]
